FAERS Safety Report 7619597-3 (Version None)
Quarter: 2011Q3

REPORT INFORMATION
  Report Type: 
  Country: None (occurrence: None)
  Receive Date: 20110719
  Receipt Date: 20080205
  Transmission Date: 20111222
  Serious: Yes (Death)
  Sender: FDA-Public Use
  Company Number: US-BAYER-200813228NA

PATIENT
  Age: 76 Year
  Sex: Female
  Weight: 92 kg

DRUGS (27)
  1. OMNIPAQUE 140 [Concomitant]
     Indication: CATHETERISATION CARDIAC
     Dosage: 109 ML, UNK
     Dates: start: 20060203
  2. PAXIL [Concomitant]
     Dosage: 20 MG/24HR, UNK
     Route: 048
  3. BUMEX [Concomitant]
     Dosage: 2 MG/24HR, UNK
     Route: 048
  4. ALTACE [Concomitant]
     Dosage: 5 MG/24HR, UNK
     Route: 048
  5. AMARYL [Concomitant]
     Dosage: 2 MG, ONE HALF TAB DAILY
     Route: 048
  6. MIDAZOLAM HCL [Concomitant]
  7. PROTAMINE SULFATE [Concomitant]
     Dosage: 300 MG, UNK
  8. TRASYLOL [Suspect]
     Indication: CORONARY ARTERY BYPASS
     Dosage: 200 ML, LOADING DOSE
     Route: 042
     Dates: start: 20060206, end: 20060206
  9. TRASYLOL [Suspect]
     Indication: MITRAL VALVE REPAIR
     Dosage: 50 ML/HR
     Route: 042
     Dates: start: 20060206, end: 20060206
  10. DIAZIDE [Concomitant]
     Dosage: 37.5-25/DAILY
     Route: 048
  11. EPINEPHRINE [Concomitant]
  12. INSULIN [Concomitant]
     Route: 042
  13. ACETYLSALICYLIC ACID SRT [Concomitant]
     Dosage: 81 MG/24HR, UNK
     Route: 048
  14. ALLOPURINOL [Concomitant]
     Dosage: 100 MG/24HR, UNK
  15. METFORMIN HCL [Concomitant]
     Dosage: 500MG/TWO TABS
     Route: 048
  16. FENTANYL-100 [Concomitant]
  17. PLATELETS [Concomitant]
     Dosage: 2 U, UNK
     Route: 042
     Dates: start: 20060206
  18. CEFAZOLIN [Concomitant]
  19. PAVULON [Concomitant]
  20. RED BLOOD CELLS [Concomitant]
     Dosage: 4 U, UNK
     Route: 042
     Dates: start: 20060206
  21. TAMOXIFEN CITRATE [Concomitant]
     Dosage: 10 MG, BID
     Route: 048
  22. COREG [Concomitant]
     Dosage: 6.25 MG, BID
     Route: 048
  23. HEPARIN [Concomitant]
  24. PROPOFOL [Concomitant]
  25. FRESH FROZEN PLASMA [Concomitant]
     Dosage: 2 U, UNK
     Route: 042
     Dates: start: 20060206
  26. NORTRIPTYLINE HCL [Concomitant]
     Dosage: 25 MG/24HR, UNK
     Route: 048
     Dates: start: 20051026, end: 20060105
  27. MILRINONE [Concomitant]

REACTIONS (11)
  - RENAL FAILURE ACUTE [None]
  - UNEVALUABLE EVENT [None]
  - PAIN [None]
  - ACTIVITIES OF DAILY LIVING IMPAIRED [None]
  - EMOTIONAL DISTRESS [None]
  - ANHEDONIA [None]
  - ADVERSE EVENT [None]
  - FEAR OF DEATH [None]
  - MITRAL VALVE INCOMPETENCE [None]
  - INJURY [None]
  - RENAL FAILURE [None]
